FAERS Safety Report 4905729-4 (Version None)
Quarter: 2006Q1

REPORT INFORMATION
  Report Type: 
  Country: None (occurrence: None)
  Receive Date: 20060208
  Receipt Date: 20050801
  Transmission Date: 20060701
  Serious: Yes (Hospitalization, Other)
  Sender: FDA-Public Use
  Company Number: US-MERCK-0508USA00799

PATIENT
  Age: 63 Year
  Sex: Female
  Weight: 73 kg

DRUGS (4)
  1. VIOXX [Suspect]
     Indication: PAIN
     Route: 048
     Dates: start: 19990101, end: 20000701
  2. LIPITOR [Concomitant]
     Route: 065
  3. LASIX [Concomitant]
     Route: 065
  4. ASPIRIN [Concomitant]
     Route: 065

REACTIONS (32)
  - ABDOMINAL PAIN UPPER [None]
  - ANGINA UNSTABLE [None]
  - ANXIETY [None]
  - BLOOD PRESSURE DECREASED [None]
  - BRONCHITIS [None]
  - BRONCHOSPASM [None]
  - CARDIOMEGALY [None]
  - CARDIOVASCULAR DISORDER [None]
  - CEREBROVASCULAR ACCIDENT [None]
  - CHEST PAIN [None]
  - CORONARY ARTERY DISEASE [None]
  - CORONARY ARTERY OCCLUSION [None]
  - COUGH [None]
  - DIZZINESS [None]
  - GASTROINTESTINAL DISORDER [None]
  - GLUCOSE TOLERANCE IMPAIRED [None]
  - HAEMATOCRIT DECREASED [None]
  - HAEMOGLOBIN DECREASED [None]
  - HYPERCHOLESTEROLAEMIA [None]
  - HYPERTENSION [None]
  - HYPOVENTILATION [None]
  - ISCHAEMIC CARDIOMYOPATHY [None]
  - MENINGIOMA [None]
  - MYOCARDIAL INFARCTION [None]
  - MYOCARDIAL ISCHAEMIA [None]
  - OEDEMA PERIPHERAL [None]
  - OESOPHAGITIS [None]
  - PANIC ATTACK [None]
  - PEPTIC ULCER [None]
  - PNEUMONIA [None]
  - THROMBOSIS [None]
  - UPPER RESPIRATORY TRACT INFECTION [None]
